FAERS Safety Report 9826334 (Version 1)
Quarter: 2014Q1

REPORT INFORMATION
  Report Type: Spontaneous
  Country: US (occurrence: US)
  Receive Date: 20140117
  Receipt Date: 20140117
  Transmission Date: 20141002
  Serious: No
  Sender: FDA-Public Use
  Company Number: US-BIOGENIDEC-2014BI003196

PATIENT
  Age: 64 Year
  Sex: Female

DRUGS (4)
  1. TECFIDERA [Suspect]
     Indication: MULTIPLE SCLEROSIS
     Route: 048
     Dates: start: 20131215, end: 20131221
  2. TECFIDERA [Suspect]
     Indication: MULTIPLE SCLEROSIS
     Route: 048
     Dates: start: 20131222
  3. LANTUS [Concomitant]
  4. HUMALOG [Concomitant]

REACTIONS (3)
  - Urinary tract infection [Unknown]
  - Blood glucose decreased [Not Recovered/Not Resolved]
  - Rash erythematous [Not Recovered/Not Resolved]
